FAERS Safety Report 21056431 (Version 1)
Quarter: 2022Q3

REPORT INFORMATION
  Report Type: Report from Study
  Country: JP (occurrence: JP)
  Receive Date: 20220708
  Receipt Date: 20220708
  Transmission Date: 20221026
  Serious: Yes (Hospitalization, Other)
  Sender: FDA-Public Use
  Company Number: JP-NBI-J202210983BIPI

PATIENT
  Age: 84 Year
  Sex: Female
  Weight: 47.2 kg

DRUGS (32)
  1. OFEV [Suspect]
     Active Substance: NINTEDANIB
     Indication: Interstitial lung disease
     Route: 048
     Dates: start: 20220114
  2. OFEV [Suspect]
     Active Substance: NINTEDANIB
     Route: 048
     Dates: start: 20220217
  3. OFEV [Suspect]
     Active Substance: NINTEDANIB
     Route: 048
     Dates: start: 20220318
  4. DIETARY SUPPLEMENT\PROBIOTICS [Concomitant]
     Active Substance: DIETARY SUPPLEMENT\PROBIOTICS
     Indication: Prophylaxis
     Route: 065
     Dates: start: 20220114
  5. RABEPRAZOLE SODIUM [Concomitant]
     Active Substance: RABEPRAZOLE SODIUM
     Indication: Product used for unknown indication
     Route: 065
  6. RABEPRAZOLE SODIUM [Concomitant]
     Active Substance: RABEPRAZOLE SODIUM
     Route: 065
  7. PITAVASTATIN CALCIUM [Concomitant]
     Active Substance: PITAVASTATIN CALCIUM
     Indication: Product used for unknown indication
     Route: 065
  8. PITAVASTATIN CALCIUM [Concomitant]
     Active Substance: PITAVASTATIN CALCIUM
     Route: 065
  9. ASPIRIN [Concomitant]
     Active Substance: ASPIRIN
     Indication: Product used for unknown indication
     Route: 065
  10. ASPIRIN [Concomitant]
     Active Substance: ASPIRIN
     Route: 065
  11. AMLODIPINE BESYLATE\CANDESARTAN CILEXETIL [Concomitant]
     Active Substance: AMLODIPINE BESYLATE\CANDESARTAN CILEXETIL
     Indication: Product used for unknown indication
     Route: 065
  12. AMLODIPINE BESYLATE\CANDESARTAN CILEXETIL [Concomitant]
     Active Substance: AMLODIPINE BESYLATE\CANDESARTAN CILEXETIL
     Route: 065
  13. MOSAPRIDE CITRATE DIHYDRATE [Concomitant]
     Active Substance: MOSAPRIDE CITRATE DIHYDRATE
     Indication: Product used for unknown indication
     Route: 065
  14. MAGNESIUM OXIDE [Concomitant]
     Active Substance: MAGNESIUM OXIDE
     Indication: Product used for unknown indication
     Route: 065
     Dates: end: 20220127
  15. MAGNESIUM OXIDE [Concomitant]
     Active Substance: MAGNESIUM OXIDE
     Route: 065
  16. MIRABEGRON [Concomitant]
     Active Substance: MIRABEGRON
     Indication: Product used for unknown indication
     Route: 065
  17. MIRABEGRON [Concomitant]
     Active Substance: MIRABEGRON
     Route: 065
  18. BROTIZOLAM [Concomitant]
     Active Substance: BROTIZOLAM
     Indication: Product used for unknown indication
     Route: 065
  19. ALLOID G [Concomitant]
     Active Substance: SODIUM ALGINATE
     Indication: Product used for unknown indication
     Route: 065
  20. ALLOID G [Concomitant]
     Active Substance: SODIUM ALGINATE
     Route: 065
  21. HUSCODE [Concomitant]
     Active Substance: CHLORPHENIRAMINE MALEATE\DIHYDROCODEINE PHOSPHATE\METHYLEPHEDRINE HYDROCHLORIDE, DL-
     Indication: Interstitial lung disease
     Route: 065
     Dates: end: 20220127
  22. HUSCODE [Concomitant]
     Active Substance: CHLORPHENIRAMINE MALEATE\DIHYDROCODEINE PHOSPHATE\METHYLEPHEDRINE HYDROCHLORIDE, DL-
     Route: 065
     Dates: start: 20220128, end: 20220202
  23. HUSCODE [Concomitant]
     Active Substance: CHLORPHENIRAMINE MALEATE\DIHYDROCODEINE PHOSPHATE\METHYLEPHEDRINE HYDROCHLORIDE, DL-
     Route: 065
  24. HUSCODE [Concomitant]
     Active Substance: CHLORPHENIRAMINE MALEATE\DIHYDROCODEINE PHOSPHATE\METHYLEPHEDRINE HYDROCHLORIDE, DL-
     Route: 065
  25. DIETARY SUPPLEMENT\PROBIOTICS [Concomitant]
     Active Substance: DIETARY SUPPLEMENT\PROBIOTICS
     Indication: Prophylaxis
     Route: 065
     Dates: start: 20220114
  26. MOSAPRIDE CITRATE DIHYDRATE [Concomitant]
     Active Substance: MOSAPRIDE CITRATE DIHYDRATE
     Indication: Product used for unknown indication
     Route: 065
  27. BROTIZOLAM [Concomitant]
     Active Substance: BROTIZOLAM
     Indication: Product used for unknown indication
     Route: 065
  28. MOVICOL [Concomitant]
     Active Substance: POLYETHYLENE GLYCOL 3350\POTASSIUM CHLORIDE\SODIUM BICARBONATE\SODIUM CHLORIDE
     Indication: Product used for unknown indication
     Route: 065
     Dates: start: 20220128
  29. SENNOSIDES [Concomitant]
     Active Substance: SENNOSIDES
     Indication: Product used for unknown indication
     Route: 065
     Dates: start: 20220128
  30. HERBALS [Concomitant]
     Active Substance: HERBALS
     Indication: Product used for unknown indication
     Route: 065
     Dates: start: 20220210
  31. LINZESS [Concomitant]
     Active Substance: LINACLOTIDE
     Indication: Product used for unknown indication
     Route: 065
     Dates: start: 20220203
  32. SODIUM PICOSULFATE [Concomitant]
     Active Substance: SODIUM PICOSULFATE
     Indication: Product used for unknown indication
     Route: 065
     Dates: start: 20220203

REACTIONS (5)
  - Interstitial lung disease [Recovered/Resolved]
  - Urinary tract infection [Recovered/Resolved]
  - Delirium [Recovered/Resolved]
  - Constipation [Recovered/Resolved]
  - Diarrhoea [Recovered/Resolved]

NARRATIVE: CASE EVENT DATE: 20220117
